FAERS Safety Report 8891315 (Version 3)
Quarter: 2012Q4

REPORT INFORMATION
  Report Type: Report from Study
  Country: JP (occurrence: JP)
  Receive Date: 20121107
  Receipt Date: 20121218
  Transmission Date: 20130627
  Serious: Yes (Hospitalization)
  Sender: FDA-Public Use
  Company Number: JP-GILEAD-2012-0064166

PATIENT
  Sex: Male

DRUGS (5)
  1. AMBRISENTAN [Suspect]
     Indication: CARDIAC DISORDER
     Dosage: .6MG Per day
     Dates: start: 20110930, end: 20111003
  2. BERAPROST SODIUM [Concomitant]
     Indication: CARDIAC DISORDER
     Route: 048
     Dates: start: 20110610, end: 20111004
  3. MONILAC [Concomitant]
     Route: 048
  4. MONILAC [Concomitant]
     Route: 048
  5. INCREMIN                           /00875401/ [Concomitant]
     Route: 048

REACTIONS (1)
  - Cardiac failure congestive [Not Recovered/Not Resolved]
